FAERS Safety Report 21928867 (Version 1)
Quarter: 2023Q1

REPORT INFORMATION
  Report Type: Spontaneous
  Country: LT (occurrence: LT)
  Receive Date: 20230131
  Receipt Date: 20230131
  Transmission Date: 20230417
  Serious: Yes (Life-Threatening, Hospitalization)
  Sender: FDA-Public Use
  Company Number: None

PATIENT
  Age: 64 Year
  Sex: Male

DRUGS (2)
  1. QUETIAPINE [Interacting]
     Active Substance: QUETIAPINE
     Indication: Product used for unknown indication
  2. QUETIAPINE [Interacting]
     Active Substance: QUETIAPINE
     Dosage: UNIT DOSE :30 DOSAGE FORMS, FREQUENCY TIME : 1 TOTAL

REACTIONS (6)
  - Alcohol interaction [Recovered/Resolved]
  - Intentional overdose [Recovered/Resolved]
  - Asthenia [Recovered/Resolved]
  - Suicide attempt [Recovered/Resolved]
  - Suicidal ideation [Recovered/Resolved]
  - Accidental overdose [Recovered/Resolved]

NARRATIVE: CASE EVENT DATE: 20230102
